FAERS Safety Report 4732540-X (Version None)
Quarter: 2005Q3

REPORT INFORMATION
  Report Type: 
  Country: None (occurrence: None)
  Receive Date: 20050803
  Receipt Date: 20050726
  Transmission Date: 20060218
  Serious: Yes (Hospitalization, Other)
  Sender: FDA-Public Use
  Company Number: GB-GLAXOSMITHKLINE-B0388899A

PATIENT
  Age: 88 Year
  Sex: Male

DRUGS (5)
  1. ACYCLOVIR [Suspect]
     Indication: HERPES ZOSTER
     Dosage: 400MG UNKNOWN
     Route: 048
     Dates: start: 20050707, end: 20050708
  2. AMOXICILLIN [Concomitant]
     Indication: LOWER RESPIRATORY TRACT INFECTION
     Dosage: 500MG PER DAY
     Route: 048
     Dates: start: 20050706, end: 20050711
  3. ACETAMINOPHEN [Concomitant]
     Dosage: 1G PER DAY
     Route: 048
     Dates: start: 20050706, end: 20050711
  4. PERINDOPRIL [Concomitant]
     Route: 048
  5. DOXYCYCLINE [Concomitant]
     Indication: LOWER RESPIRATORY TRACT INFECTION
     Dosage: 100MG PER DAY
     Route: 048
     Dates: start: 20050714

REACTIONS (2)
  - BICYTOPENIA [None]
  - NEUTROPENIA [None]
